FAERS Safety Report 26123947 (Version 1)
Quarter: 2025Q4

REPORT INFORMATION
  Report Type: Spontaneous
  Country: GB (occurrence: GB)
  Receive Date: 20251205
  Receipt Date: 20251205
  Transmission Date: 20260117
  Serious: Yes (Disabling, Other)
  Sender: ACCORD
  Company Number: None

PATIENT

DRUGS (5)
  1. FINASTERIDE [Suspect]
     Active Substance: FINASTERIDE
     Indication: Product used for unknown indication
  2. ATORVASTATIN [Concomitant]
     Active Substance: ATORVASTATIN
  3. AMLODIPINE [Concomitant]
     Active Substance: AMLODIPINE BESYLATE
  4. DOXAZOSIN MESYLATE [Concomitant]
     Active Substance: DOXAZOSIN MESYLATE
  5. PREGABALIN [Concomitant]
     Active Substance: PREGABALIN

REACTIONS (10)
  - Depressed mood [Not Recovered/Not Resolved]
  - Fatigue [Unknown]
  - Depression [Unknown]
  - Pruritus [Unknown]
  - Breast swelling [Unknown]
  - Libido decreased [Unknown]
  - Erectile dysfunction [Unknown]
  - Asthenia [Unknown]
  - Anxiety [Unknown]
  - Acne [Unknown]
